FAERS Safety Report 18640615 (Version 1)
Quarter: 2020Q4

REPORT INFORMATION
  Report Type: Spontaneous
  Country: CA (occurrence: CA)
  Receive Date: 20201221
  Receipt Date: 20201221
  Transmission Date: 20210114
  Serious: Yes (Other)
  Sender: FDA-Public Use
  Company Number: CA-CELLTRION INC.-2020CA033727

PATIENT

DRUGS (6)
  1. INFLECTRA [Suspect]
     Active Substance: INFLIXIMAB-DYYB
     Dosage: 300 MG AT WEEK 0, 2, 6 AND THEN EVERY 4 WEEKS (RE-INDUCTION)
     Route: 042
     Dates: start: 20201027
  2. SALOFALK [MESALAZINE] [Concomitant]
     Active Substance: MESALAMINE
     Dosage: 4 DF, 2X/DAY
     Route: 048
     Dates: start: 201711
  3. INFLECTRA [Suspect]
     Active Substance: INFLIXIMAB-DYYB
     Indication: COLITIS ULCERATIVE
     Dosage: 300 MG AT WEEK 0, 2, 6 AND THEN EVERY 4 WEEKS (RE-INDUCTION)
     Route: 042
     Dates: start: 20200303
  4. INFLECTRA [Suspect]
     Active Substance: INFLIXIMAB-DYYB
     Dosage: 300 MG AT WEEK 0, 2, 6 AND THEN EVERY 4 WEEKS (RE-INDUCTION)
     Route: 042
     Dates: start: 20201126
  5. PREVACID [Concomitant]
     Active Substance: LANSOPRAZOLE
     Dosage: 1 DF, AS NEEDED
     Route: 048
     Dates: start: 2009
  6. INFLECTRA [Suspect]
     Active Substance: INFLIXIMAB-DYYB
     Dosage: 300 MG AT WEEK 0, 2, 6 AND THEN EVERY 4 WEEKS (RE-INDUCTION)
     Route: 042
     Dates: start: 20200806

REACTIONS (2)
  - Gestational diabetes [Unknown]
  - Maternal exposure during pregnancy [Unknown]

NARRATIVE: CASE EVENT DATE: 2020
